FAERS Safety Report 4621245-1 (Version None)
Quarter: 2005Q1

REPORT INFORMATION
  Report Type: 
  Country: None (occurrence: None)
  Receive Date: 20050329
  Receipt Date: 20050317
  Transmission Date: 20050727
  Serious: Yes (Other)
  Sender: FDA-Public Use
  Company Number: US-JNJFOC-20050205034

PATIENT
  Sex: Female

DRUGS (6)
  1. REMICADE [Suspect]
     Route: 042
  2. REMICADE [Suspect]
     Indication: CROHN'S DISEASE
     Route: 042
  3. IMURAN [Concomitant]
     Indication: CROHN'S DISEASE
  4. PREVACID [Concomitant]
  5. LEVOXYL [Concomitant]
     Indication: HYPOTHYROIDISM
  6. EVISTA [Concomitant]

REACTIONS (1)
  - NON-SMALL CELL LUNG CANCER RECURRENT [None]
